FAERS Safety Report 7246455-9 (Version None)
Quarter: 2011Q1

REPORT INFORMATION
  Report Type: 
  Country: None (occurrence: None)
  Receive Date: 20110126
  Receipt Date: 20101018
  Transmission Date: 20110831
  Serious: No
  Sender: FDA-Public Use
  Company Number: US-MYLANLABS-2010S1019049

PATIENT
  Age: 66 Year
  Sex: Male
  Weight: 85.73 kg

DRUGS (2)
  1. TAMSULOSIN HCL [Suspect]
     Indication: BENIGN PROSTATIC HYPERPLASIA
     Route: 048
     Dates: start: 20100901
  2. RADIATION THERAPY [Suspect]
     Indication: PROSTATE CANCER
     Dates: start: 20100927

REACTIONS (3)
  - NOCTURIA [None]
  - DRUG EFFECT DECREASED [None]
  - DYSURIA [None]
